FAERS Safety Report 15703957 (Version 1)
Quarter: 2018Q4

REPORT INFORMATION
  Report Type: Spontaneous
  Country: US (occurrence: US)
  Receive Date: 20181210
  Receipt Date: 20181210
  Transmission Date: 20190205
  Serious: No
  Sender: FDA-Public Use
  Company Number: US-DRREDDYS-USA/USA/18/0105724

PATIENT
  Sex: Female
  Weight: 77.3 kg

DRUGS (3)
  1. ZANTAC [Concomitant]
     Active Substance: RANITIDINE HYDROCHLORIDE
     Indication: DYSPEPSIA
  2. RANITIDINE. [Suspect]
     Active Substance: RANITIDINE
     Indication: DYSPEPSIA
     Route: 048
  3. TUMS [Concomitant]
     Active Substance: CALCIUM CARBONATE
     Indication: DYSPEPSIA

REACTIONS (1)
  - Drug ineffective [Unknown]
